FAERS Safety Report 5697640-9 (Version None)
Quarter: 2008Q2

REPORT INFORMATION
  Report Type: 
  Country: None (occurrence: None)
  Receive Date: 20080408
  Receipt Date: 20070911
  Transmission Date: 20081010
  Serious: Yes (Death)
  Sender: FDA-Public Use
  Company Number: US-GENENTECH-247544

PATIENT
  Sex: Male
  Weight: 74 kg

DRUGS (1)
  1. BEVACIZUMAB [Suspect]
     Indication: NON-SMALL CELL LUNG CANCER
     Dosage: 1110 MG, Q3W
     Route: 042
     Dates: start: 20070821, end: 20070821

REACTIONS (1)
  - LUNG CANCER METASTATIC [None]
